FAERS Safety Report 18055931 (Version 3)
Quarter: 2021Q2

REPORT INFORMATION
  Report Type: Spontaneous
  Country: US (occurrence: US)
  Receive Date: 20200722
  Receipt Date: 20210624
  Transmission Date: 20210717
  Serious: Yes (Other)
  Sender: FDA-Public Use
  Company Number: US-GILEAD-2020-0484507

PATIENT
  Age: 24 Year
  Sex: Male
  Weight: 113.38 kg

DRUGS (23)
  1. ENOXAPARIN [Concomitant]
     Active Substance: ENOXAPARIN
  2. VITAMIN C [Concomitant]
     Active Substance: ASCORBIC ACID
  3. TRUVADA [Suspect]
     Active Substance: EMTRICITABINE\TENOFOVIR DISOPROXIL FUMARATE
     Dosage: UNK
     Route: 048
     Dates: start: 201609, end: 201706
  4. ASPIRIN (E.C.) [Concomitant]
     Active Substance: ASPIRIN
  5. CORTISONE [Concomitant]
     Active Substance: CORTISONE
  6. OXYCODONE [Concomitant]
     Active Substance: OXYCODONE
  7. MONTELUKAST [Concomitant]
     Active Substance: MONTELUKAST SODIUM
  8. AZELASTINE. [Concomitant]
     Active Substance: AZELASTINE HYDROCHLORIDE
  9. BENZONATATE. [Concomitant]
     Active Substance: BENZONATATE
  10. TRUVADA [Suspect]
     Active Substance: EMTRICITABINE\TENOFOVIR DISOPROXIL FUMARATE
     Indication: PROPHYLAXIS AGAINST HIV INFECTION
     Dosage: UNK
     Route: 048
     Dates: start: 201606, end: 201704
  11. TRAMADOL. [Concomitant]
     Active Substance: TRAMADOL
  12. CEPHALEXIN [CEFALEXIN] [Concomitant]
     Active Substance: CEPHALEXIN
  13. ACETAMINOPHEN. [Concomitant]
     Active Substance: ACETAMINOPHEN
  14. PENICILLIN NOS [Concomitant]
     Active Substance: PENICILLIN
  15. FERROUS SULFATE. [Concomitant]
     Active Substance: FERROUS SULFATE
  16. FLONASE [Concomitant]
     Active Substance: FLUTICASONE PROPIONATE
  17. PREDNISONE. [Concomitant]
     Active Substance: PREDNISONE
  18. DICYCLOMINE [Concomitant]
     Active Substance: DICYCLOMINE HYDROCHLORIDE
  19. DOXYCYCLINE. [Concomitant]
     Active Substance: DOXYCYCLINE
  20. FOLIC ACID. [Concomitant]
     Active Substance: FOLIC ACID
  21. AMOXICILLIN. [Concomitant]
     Active Substance: AMOXICILLIN
  22. ALBUTEROL [SALBUTAMOL SULFATE] [Concomitant]
     Active Substance: ALBUTEROL SULFATE
  23. LAMOTRIGINE. [Concomitant]
     Active Substance: LAMOTRIGINE

REACTIONS (4)
  - Bone loss [Unknown]
  - Osteonecrosis [Not Recovered/Not Resolved]
  - Pain [Unknown]
  - Emotional distress [Unknown]

NARRATIVE: CASE EVENT DATE: 20170929
